FAERS Safety Report 20235988 (Version 2)
Quarter: 2022Q1

REPORT INFORMATION
  Report Type: Spontaneous
  Country: JP (occurrence: JP)
  Receive Date: 20211228
  Receipt Date: 20220302
  Transmission Date: 20220423
  Serious: Yes (Hospitalization)
  Sender: FDA-Public Use
  Company Number: JP-BRISTOL-MYERS SQUIBB COMPANY-BMS-2021-101565

PATIENT
  Age: 79 Year
  Sex: Female

DRUGS (1)
  1. HYDREA [Suspect]
     Active Substance: HYDROXYUREA
     Indication: Thrombocytosis
     Dosage: 500 MILLIGRAM, QD
     Route: 048
     Dates: end: 20211005

REACTIONS (3)
  - Lagophthalmos [Unknown]
  - Lip disorder [Unknown]
  - Skin ulcer [Recovering/Resolving]
